FAERS Safety Report 8576633-8 (Version None)
Quarter: 2012Q3

REPORT INFORMATION
  Report Type: 
  Country: None (occurrence: None)
  Receive Date: 20120807
  Receipt Date: 20120804
  Transmission Date: 20120928
  Serious: No
  Sender: FDA-Public Use
  Company Number: US-TEVA-352286USA

PATIENT
  Sex: Female

DRUGS (2)
  1. PLAN B ONE-STEP [Suspect]
     Indication: POST COITAL CONTRACEPTION
     Dosage: 1.5 MILLIGRAM DAILY;
     Route: 048
  2. 2 PILL EMERGENCY CONTRACEPTIVE [Suspect]
     Indication: POST COITAL CONTRACEPTION

REACTIONS (1)
  - MENSTRUATION IRREGULAR [None]
